FAERS Safety Report 14710883 (Version 2)
Quarter: 2018Q2

REPORT INFORMATION
  Report Type: Spontaneous
  Country: FR (occurrence: FR)
  Receive Date: 20180403
  Receipt Date: 20180615
  Transmission Date: 20180711
  Serious: No
  Sender: FDA-Public Use
  Company Number: FR-MYLANLABS-2018M1021843

PATIENT
  Age: 78 Year
  Sex: Female
  Weight: 70 kg

DRUGS (1)
  1. ARIXTRA [Suspect]
     Active Substance: FONDAPARINUX SODIUM
     Indication: THROMBOSIS PROPHYLAXIS
     Dosage: 2.5 MG, UNK
     Route: 058
     Dates: start: 20180309, end: 20180321

REACTIONS (1)
  - Diarrhoea [Recovered/Resolved]

NARRATIVE: CASE EVENT DATE: 20180315
